FAERS Safety Report 4422152-X (Version None)
Quarter: 2004Q3

REPORT INFORMATION
  Report Type: 
  Country: None (occurrence: None)
  Receive Date: 20040712
  Receipt Date: 20030908
  Transmission Date: 20050211
  Serious: Yes (Hospitalization)
  Sender: FDA-Public Use
  Company Number: TAP2003Q02074

PATIENT
  Age: 70 Year
  Sex: Male
  Weight: 108.8633 kg

DRUGS (4)
  1. PREVACID [Suspect]
     Indication: GASTROOESOPHAGEAL REFLUX DISEASE
     Dosage: 30 MG, 1 IN 1 D; ORAL
     Route: 048
     Dates: start: 19950101, end: 20030907
  2. METOPROLOL [Concomitant]
  3. NORVASC [Concomitant]
  4. SPIRONOLACTONE [Concomitant]

REACTIONS (1)
  - DRUG INEFFECTIVE [None]
